FAERS Safety Report 5672133-3 (Version None)
Quarter: 2008Q1

REPORT INFORMATION
  Report Type: 
  Country: None (occurrence: None)
  Receive Date: 20080319
  Receipt Date: 20080313
  Transmission Date: 20080703
  Serious: Yes (Other)
  Sender: FDA-Public Use
  Company Number: JP-NOVOPROD-273160

PATIENT
  Age: 62 Year
  Sex: Female

DRUGS (6)
  1. LEVEMIR [Suspect]
     Indication: DRUG USE FOR UNKNOWN INDICATION
     Dosage: 3 IU, QD
     Route: 058
     Dates: start: 20080123, end: 20080301
  2. LEVEMIR [Suspect]
     Dosage: 3 IU, UNK
     Route: 058
     Dates: start: 20080303
  3. NOVORAPID CHU FLEXPEN [Suspect]
     Indication: DRUG USE FOR UNKNOWN INDICATION
     Dosage: 24 IU, QD
     Route: 058
     Dates: start: 20080123, end: 20080301
  4. NOVORAPID CHU FLEXPEN [Suspect]
     Dosage: 8+4+4 IU, UNK
     Route: 058
     Dates: start: 20080301
  5. NOVOLIN N [Suspect]
     Indication: DRUG USE FOR UNKNOWN INDICATION
     Dosage: 4 IU, QD
     Route: 058
     Dates: start: 20080301, end: 20080303
  6. PASETOCIN                          /00249601/ [Concomitant]

REACTIONS (4)
  - ABDOMINAL PAIN [None]
  - HYPOGLYCAEMIA [None]
  - PYREXIA [None]
  - VOMITING [None]
